FAERS Safety Report 23919169 (Version 2)
Quarter: 2024Q3

REPORT INFORMATION
  Report Type: Spontaneous
  Country: US (occurrence: US)
  Receive Date: 20240530
  Receipt Date: 20240722
  Transmission Date: 20241016
  Serious: No
  Sender: Haleon PLC
  Company Number: US-HALEON-2178929

PATIENT
  Age: 59 Year
  Sex: Female

DRUGS (1)
  1. TUMS ULTRA [Suspect]
     Active Substance: CALCIUM CARBONATE
     Indication: Product used for unknown indication
     Dosage: EXPDATE:20260228EXPDATE:20260228

REACTIONS (3)
  - Hyperactive pharyngeal reflex [Unknown]
  - Retching [Unknown]
  - Product complaint [Unknown]
